FAERS Safety Report 13557682 (Version 1)
Quarter: 2017Q2

REPORT INFORMATION
  Report Type: Spontaneous
  Country: JP (occurrence: JP)
  Receive Date: 20170518
  Receipt Date: 20170518
  Transmission Date: 20170830
  Serious: Yes (Hospitalization, Other)
  Sender: FDA-Public Use
  Company Number: JP-PFIZER INC-2017073216

PATIENT
  Age: 15 Year
  Sex: Female
  Weight: 50 kg

DRUGS (15)
  1. DOCETAXEL 80MG/8ML HOSPIRA [Suspect]
     Active Substance: DOCETAXEL
     Indication: EWING^S SARCOMA RECURRENT
     Dosage: 145 MG, 1X/DAY
     Route: 042
     Dates: start: 20160803, end: 20160803
  2. DOCETAXEL 80MG/8ML HOSPIRA [Suspect]
     Active Substance: DOCETAXEL
     Dosage: 145 MG, 1X/DAY
     Route: 042
     Dates: start: 20161020, end: 20161020
  3. GEMCITABINE HYDROCHLORIDE. [Suspect]
     Active Substance: GEMCITABINE HYDROCHLORIDE
     Dosage: 1300 MG, 1X/DAY
     Route: 042
     Dates: start: 20160803, end: 20160803
  4. GEMCITABINE HYDROCHLORIDE. [Suspect]
     Active Substance: GEMCITABINE HYDROCHLORIDE
     Dosage: 1300 MG, 1X/DAY
     Route: 042
     Dates: start: 20160921, end: 20160921
  5. GEMCITABINE HYDROCHLORIDE. [Suspect]
     Active Substance: GEMCITABINE HYDROCHLORIDE
     Dosage: 1300 MG, 1X/DAY
     Route: 042
     Dates: start: 20161013, end: 20161013
  6. GEMCITABINE HYDROCHLORIDE. [Suspect]
     Active Substance: GEMCITABINE HYDROCHLORIDE
     Dosage: 1300 MG, 1X/DAY
     Route: 042
     Dates: start: 20161104, end: 20161104
  7. GEMCITABINE HYDROCHLORIDE. [Suspect]
     Active Substance: GEMCITABINE HYDROCHLORIDE
     Indication: EWING^S SARCOMA RECURRENT
     Dosage: 1300 MG, 1X/DAY
     Route: 042
     Dates: start: 20160727, end: 20160727
  8. GEMCITABINE HYDROCHLORIDE. [Suspect]
     Active Substance: GEMCITABINE HYDROCHLORIDE
     Dosage: 1300 MG, 1X/DAY
     Route: 042
     Dates: start: 20160826, end: 20160826
  9. GEMCITABINE HYDROCHLORIDE. [Suspect]
     Active Substance: GEMCITABINE HYDROCHLORIDE
     Dosage: 1300 MG, 1X/DAY
     Route: 042
     Dates: start: 20160915, end: 20160915
  10. GEMCITABINE HYDROCHLORIDE. [Suspect]
     Active Substance: GEMCITABINE HYDROCHLORIDE
     Dosage: 1300 MG, 1X/DAY
     Route: 042
     Dates: start: 20161114, end: 20161114
  11. GEMCITABINE HYDROCHLORIDE. [Suspect]
     Active Substance: GEMCITABINE HYDROCHLORIDE
     Dosage: 1300 MG, 1X/DAY
     Route: 042
     Dates: start: 20160819, end: 20160819
  12. DOCETAXEL 80MG/8ML HOSPIRA [Suspect]
     Active Substance: DOCETAXEL
     Dosage: 145 MG, 1X/DAY
     Route: 042
     Dates: start: 20161114, end: 20161114
  13. GEMCITABINE HYDROCHLORIDE. [Suspect]
     Active Substance: GEMCITABINE HYDROCHLORIDE
     Dosage: 1300 MG, 1X/DAY
     Route: 042
     Dates: start: 20161020, end: 20161020
  14. DOCETAXEL 80MG/8ML HOSPIRA [Suspect]
     Active Substance: DOCETAXEL
     Dosage: 145 MG, 1X/DAY
     Route: 042
     Dates: start: 20160921, end: 20160921
  15. DOCETAXEL 80MG/8ML HOSPIRA [Suspect]
     Active Substance: DOCETAXEL
     Dosage: 145 MG, 1X/DAY
     Route: 042
     Dates: start: 20160826, end: 20160826

REACTIONS (2)
  - Peripheral circulatory failure [Recovered/Resolved]
  - Recall phenomenon [Recovering/Resolving]

NARRATIVE: CASE EVENT DATE: 20160916
